FAERS Safety Report 13067831 (Version 2)
Quarter: 2017Q1

REPORT INFORMATION
  Report Type: Spontaneous
  Country: US (occurrence: US)
  Receive Date: 20161228
  Receipt Date: 20170105
  Transmission Date: 20170428
  Serious: No
  Sender: FDA-Public Use
  Company Number: US-BIOGEN-2016BI00333081

PATIENT

DRUGS (1)
  1. TYSABRI [Suspect]
     Active Substance: NATALIZUMAB
     Indication: PRODUCT USED FOR UNKNOWN INDICATION
     Route: 065

REACTIONS (6)
  - General symptom [Unknown]
  - Feeling abnormal [Unknown]
  - Pain in extremity [Unknown]
  - Multiple sclerosis [Unknown]
  - Fatigue [Unknown]
  - Depression [Unknown]
